FAERS Safety Report 23265526 (Version 1)
Quarter: 2023Q4

REPORT INFORMATION
  Report Type: Spontaneous
  Country: FR (occurrence: FR)
  Receive Date: 20231206
  Receipt Date: 20231206
  Transmission Date: 20240109
  Serious: Yes (Hospitalization, Other)
  Sender: FDA-Public Use
  Company Number: FR-ROCHE-3177023

PATIENT
  Age: 56 Year
  Sex: Male

DRUGS (22)
  1. CAPECITABINE [Suspect]
     Active Substance: CAPECITABINE
     Indication: Colorectal cancer metastatic
     Dosage: CYCLE 07
     Route: 048
     Dates: start: 20220711
  2. CAPECITABINE [Suspect]
     Active Substance: CAPECITABINE
     Dosage: 4TH CYCLE
     Route: 050
     Dates: start: 20220506
  3. CAPECITABINE [Suspect]
     Active Substance: CAPECITABINE
     Dosage: CYCLE 07?DATE OF LAST ADMINISTRATION 25/JUL/2022
     Route: 048
     Dates: start: 20220303, end: 20220725
  4. ATEZOLIZUMAB [Suspect]
     Active Substance: ATEZOLIZUMAB
     Indication: Colorectal cancer metastatic
     Dosage: CYCLE 07
     Route: 042
     Dates: start: 20220711
  5. ATEZOLIZUMAB [Suspect]
     Active Substance: ATEZOLIZUMAB
     Dosage: 4TH CYCLE
     Route: 042
     Dates: start: 20220506
  6. ATEZOLIZUMAB [Suspect]
     Active Substance: ATEZOLIZUMAB
     Dosage: DATE OF LAST ADMINISTRATION 11/JUL/2022?CYCLE 07
     Route: 042
     Dates: start: 20220303
  7. OXALIPLATIN [Suspect]
     Active Substance: OXALIPLATIN
     Indication: Colorectal cancer metastatic
     Dosage: 4TH CYCLE
     Route: 042
     Dates: start: 20220506
  8. OXALIPLATIN [Suspect]
     Active Substance: OXALIPLATIN
     Dosage: 5TH CYCLE
     Route: 042
     Dates: start: 20220530
  9. OXALIPLATIN [Suspect]
     Active Substance: OXALIPLATIN
     Dosage: DATE OF LAST ADMINISTRATION 30/MAY/2022?CYCLE 05
     Route: 042
     Dates: start: 20220303, end: 20220530
  10. DEVICE\YTTRIUM Y-90 [Suspect]
     Active Substance: DEVICE\YTTRIUM Y-90
     Indication: Colorectal cancer metastatic
     Dates: start: 20220415
  11. DEVICE\YTTRIUM Y-90 [Suspect]
     Active Substance: DEVICE\YTTRIUM Y-90
     Dosage: DATE OF LAST ADMINISTRATION 15/APR/2022
     Dates: start: 20220316
  12. BEVACIZUMAB [Suspect]
     Active Substance: BEVACIZUMAB
     Indication: Colorectal cancer metastatic
     Dosage: DATE OF LAST ADMINISTRATION 11/JUL/2022?CYCLE 07
     Route: 042
  13. BEVACIZUMAB [Suspect]
     Active Substance: BEVACIZUMAB
     Dates: start: 20220711
  14. VERAPAMIL [Concomitant]
     Active Substance: VERAPAMIL HYDROCHLORIDE
     Indication: Hypertension
  15. ATORVASTATIN [Concomitant]
     Active Substance: ATORVASTATIN
     Indication: Dyslipidaemia
  16. ALBUTEROL SULFATE [Concomitant]
     Active Substance: ALBUTEROL SULFATE
     Indication: Asthma
  17. ORALAIR [Concomitant]
     Active Substance: ANTHOXANTHUM ODORATUM POLLEN\DACTYLIS GLOMERATA POLLEN\LOLIUM PERENNE POLLEN\PHLEUM PRATENSE POLLEN\
     Indication: Asthma
     Dates: start: 20211209
  18. RAMIPRIL [Concomitant]
     Active Substance: RAMIPRIL
     Indication: Hypertension
  19. CETIRIZINE HYDROCHLORIDE [Concomitant]
     Active Substance: CETIRIZINE HYDROCHLORIDE
     Indication: Asthma
  20. SERETIDE [Concomitant]
     Active Substance: FLUTICASONE PROPIONATE\SALMETEROL XINAFOATE
     Indication: Asthma
     Dosage: 500/50 MCG
  21. SINGULAIR [Concomitant]
     Active Substance: MONTELUKAST SODIUM
     Indication: Asthma
  22. ACARIZAX [Concomitant]
     Active Substance: DERMATOPHAGOIDES FARINAE\DERMATOPHAGOIDES PTERONYSSINUS
     Indication: Asthma
     Dates: start: 20211209

REACTIONS (5)
  - Venoocclusive liver disease [Recovered/Resolved]
  - Hepatocellular injury [Unknown]
  - Cholestasis [Unknown]
  - Portal vein thrombosis [Unknown]
  - Hepatic cytolysis [Unknown]

NARRATIVE: CASE EVENT DATE: 20220703
